FAERS Safety Report 8264893-2 (Version None)
Quarter: 2012Q2

REPORT INFORMATION
  Report Type: 
  Country: None (occurrence: None)
  Receive Date: 20120406
  Receipt Date: 20120329
  Transmission Date: 20120825
  Serious: Yes (Other)
  Sender: FDA-Public Use
  Company Number: JP-VERTEX PHARMACEUTICALS INC.-AE-2012-003751

PATIENT
  Age: 60 Year
  Sex: Female

DRUGS (6)
  1. PEG-INTRON [Concomitant]
     Indication: HEPATITIS C
     Route: 058
     Dates: start: 20120112
  2. RIBAVIRIN [Concomitant]
     Indication: HEPATITIS C
     Route: 048
     Dates: start: 20120112, end: 20120129
  3. RIBAVIRIN [Concomitant]
     Route: 048
     Dates: start: 20120130, end: 20120319
  4. RIBAVIRIN [Concomitant]
     Dates: start: 20120319
  5. TELAVIC (TELAPREVIR) [Suspect]
     Indication: HEPATITIS C
     Route: 048
     Dates: start: 20120112, end: 20120206
  6. TELAVIC (TELAPREVIR) [Suspect]
     Route: 048
     Dates: start: 20120207, end: 20120312

REACTIONS (5)
  - COUGH [None]
  - ERYTHEMA [None]
  - PYREXIA [None]
  - INJECTION SITE PUSTULE [None]
  - RASH [None]
